FAERS Safety Report 18574771 (Version 2)
Quarter: 2020Q4

REPORT INFORMATION
  Report Type: Spontaneous
  Country: JP (occurrence: JP)
  Receive Date: 20201203
  Receipt Date: 20201208
  Transmission Date: 20210114
  Serious: Yes (Hospitalization, Other)
  Sender: FDA-Public Use
  Company Number: JP-JNJFOC-20201152744

PATIENT
  Sex: Female

DRUGS (9)
  1. INVEGA [Suspect]
     Active Substance: PALIPERIDONE
     Route: 048
  2. INVEGA [Suspect]
     Active Substance: PALIPERIDONE
     Route: 048
  3. INVEGA [Suspect]
     Active Substance: PALIPERIDONE
     Route: 048
  4. INVEGA [Suspect]
     Active Substance: PALIPERIDONE
     Route: 048
  5. XEPLION [Concomitant]
     Active Substance: PALIPERIDONE PALMITATE
     Indication: SCHIZOPHRENIA
     Route: 030
  6. INVEGA [Suspect]
     Active Substance: PALIPERIDONE
     Indication: SCHIZOPHRENIA
     Route: 048
  7. XEPLION [Concomitant]
     Active Substance: PALIPERIDONE PALMITATE
     Route: 030
  8. INVEGA [Suspect]
     Active Substance: PALIPERIDONE
     Route: 048
  9. CLOZAPINE. [Concomitant]
     Active Substance: CLOZAPINE
     Indication: SCHIZOPHRENIA
     Dosage: DOSE UNKNOWN
     Route: 048

REACTIONS (10)
  - Blood glucose increased [Unknown]
  - Schizophrenia [Unknown]
  - Extrapyramidal disorder [Unknown]
  - Aggression [Unknown]
  - Adverse reaction [Unknown]
  - Hospitalisation [Unknown]
  - Weight increased [Unknown]
  - Hypoaesthesia [Unknown]
  - Pain in extremity [Unknown]
  - Tremor [Unknown]
